FAERS Safety Report 16732550 (Version 2)
Quarter: 2019Q4

REPORT INFORMATION
  Report Type: Spontaneous
  Country: BR (occurrence: BR)
  Receive Date: 20190823
  Receipt Date: 20191122
  Transmission Date: 20200122
  Serious: Yes (Other)
  Sender: FDA-Public Use
  Company Number: PHHY2019BR126143

PATIENT
  Age: 64 Year
  Sex: Female
  Weight: 140 kg

DRUGS (7)
  1. FORASEQ [Suspect]
     Active Substance: BUDESONIDE\FORMOTEROL FUMARATE
     Indication: ASTHMA
     Dosage: 1 DF, TID
     Route: 055
     Dates: start: 2003
  2. RIVOTRIL [Concomitant]
     Active Substance: CLONAZEPAM
     Indication: INSOMNIA
     Dosage: 1 DF, QD
     Route: 048
     Dates: start: 2009
  3. GARDENAL [Concomitant]
     Active Substance: PHENOBARBITAL
     Indication: EPILEPSY
     Dosage: 1 DF, QD (SINCE 14 YEARS OLD)
     Route: 048
  4. FORASEQ [Suspect]
     Active Substance: BUDESONIDE\FORMOTEROL FUMARATE
     Dosage: 1 DF, QD
     Route: 055
     Dates: start: 2010
  5. FORASEQ [Suspect]
     Active Substance: BUDESONIDE\FORMOTEROL FUMARATE
     Indication: BRONCHITIS
     Dosage: 1 DF, TID
     Route: 055
     Dates: start: 2009
  6. FLUOXETINE [Suspect]
     Active Substance: FLUOXETINE HYDROCHLORIDE
     Indication: DEPRESSION
     Dosage: 1 DF, QD (3 YEARS AGO)
     Route: 048
  7. DIAZEPAM. [Concomitant]
     Active Substance: DIAZEPAM
     Indication: INSOMNIA
     Dosage: 1 DF, QD
     Route: 048
     Dates: start: 2009

REACTIONS (29)
  - Pain [Not Recovered/Not Resolved]
  - Arthralgia [Recovering/Resolving]
  - Zika virus infection [Recovered/Resolved]
  - Eye irritation [Recovered/Resolved]
  - Purpura [Unknown]
  - Dyspnoea [Recovered/Resolved]
  - Rhinitis [Recovered/Resolved]
  - Rhinitis [Recovered/Resolved]
  - Hypersensitivity [Recovered/Resolved]
  - Gait inability [Not Recovered/Not Resolved]
  - Calculus bladder [Unknown]
  - Umbilical hernia [Not Recovered/Not Resolved]
  - Bronchitis [Recovered/Resolved]
  - Hypersensitivity [Recovered/Resolved]
  - Chikungunya virus infection [Recovered/Resolved with Sequelae]
  - Chikungunya virus infection [Recovered/Resolved]
  - Platelet count decreased [Recovering/Resolving]
  - Ocular hyperaemia [Recovering/Resolving]
  - Malaise [Recovered/Resolved]
  - Pain in extremity [Recovering/Resolving]
  - Immune system disorder [Recovering/Resolving]
  - Obesity [Unknown]
  - Hypertension [Not Recovered/Not Resolved]
  - Cholelithiasis [Not Recovered/Not Resolved]
  - Bronchitis [Recovered/Resolved]
  - Peripheral swelling [Recovering/Resolving]
  - Thrombosis [Recovered/Resolved]
  - Foot fracture [Not Recovered/Not Resolved]
  - Spinal pain [Recovering/Resolving]

NARRATIVE: CASE EVENT DATE: 2017
